FAERS Safety Report 21358595 (Version 1)
Quarter: 2022Q3

REPORT INFORMATION
  Report Type: Spontaneous
  Country: US (occurrence: US)
  Receive Date: 20220921
  Receipt Date: 20220921
  Transmission Date: 20221027
  Serious: No
  Sender: FDA-Public Use
  Company Number: US-BRISTOL-MYERS SQUIBB COMPANY-2022-108348

PATIENT
  Age: 66 Year
  Sex: Female
  Weight: 63.95 kg

DRUGS (1)
  1. THALOMID [Suspect]
     Active Substance: THALIDOMIDE
     Indication: Plasma cell myeloma
     Dosage: FREQ -  DAILY
     Route: 048
     Dates: start: 20220629

REACTIONS (2)
  - Adverse event [Unknown]
  - Prescribed underdose [Unknown]
